FAERS Safety Report 10237092 (Version 1)
Quarter: 2014Q2

REPORT INFORMATION
  Report Type: Report from Study
  Country: GB (occurrence: GB)
  Receive Date: 20140613
  Receipt Date: 20140613
  Transmission Date: 20141212
  Serious: Yes (Life-Threatening)
  Sender: FDA-Public Use
  Company Number: GB-ROCHE-1418725

PATIENT
  Age: 66 Year
  Sex: Male
  Weight: 90 kg

DRUGS (3)
  1. BEVACIZUMAB [Suspect]
     Indication: COLORECTAL CANCER METASTATIC
     Dosage: LAST DOSE PRIOR TO SAE: 10/APR/2014.
     Route: 042
     Dates: start: 20140115
  2. ONDANSETRON [Concomitant]
     Route: 065
     Dates: start: 20140410, end: 20140412
  3. DEXAMETHASONE [Concomitant]
     Dosage: REDUCING DOSE
     Route: 065
     Dates: start: 20140410, end: 20140412

REACTIONS (1)
  - Pulmonary embolism [Not Recovered/Not Resolved]
